FAERS Safety Report 4934725-6 (Version None)
Quarter: 2006Q1

REPORT INFORMATION
  Report Type: 
  Country: None (occurrence: None)
  Receive Date: 20060307
  Receipt Date: 20051013
  Transmission Date: 20060701
  Serious: Yes (Hospitalization)
  Sender: FDA-Public Use
  Company Number: PR-MERCK-0510USA07322

PATIENT
  Age: 47 Year
  Sex: Male
  Weight: 83 kg

DRUGS (6)
  1. VIOXX [Suspect]
     Indication: BACK PAIN
     Route: 048
     Dates: start: 20001113, end: 20030401
  2. VASERETIC [Concomitant]
     Indication: HYPERTENSION
     Route: 065
     Dates: start: 20000520, end: 20011025
  3. SKELAXIN [Concomitant]
     Route: 065
     Dates: start: 20010226, end: 20010327
  4. ZOCOR [Concomitant]
     Indication: BLOOD CHOLESTEROL INCREASED
     Route: 065
     Dates: start: 20011025, end: 20020823
  5. ENALAPRIL MALEATE [Concomitant]
     Route: 065
     Dates: start: 20011004, end: 20030325
  6. ZITHROMAX [Concomitant]
     Route: 065
     Dates: start: 20020219, end: 20020226

REACTIONS (2)
  - ACUTE MYOCARDIAL INFARCTION [None]
  - HYPERTENSION [None]
